FAERS Safety Report 23994045 (Version 1)
Quarter: 2024Q2

REPORT INFORMATION
  Report Type: Spontaneous
  Country: US (occurrence: US)
  Receive Date: 20240620
  Receipt Date: 20240620
  Transmission Date: 20240716
  Serious: Yes (Life-Threatening, Hospitalization)
  Sender: FDA-Public Use
  Company Number: US-AMAROX PHARMA-HET2024US01766

PATIENT
  Weight: 78.005 kg

DRUGS (2)
  1. MONTELUKAST [Suspect]
     Active Substance: MONTELUKAST SODIUM
     Indication: Product used for unknown indication
     Dosage: 1 DOSAGE FORM, Q.H.S. (1 PILL DAILY AT BED TIME)
     Route: 048
     Dates: start: 20230208, end: 20230210
  2. ANASTROZOLE [Concomitant]
     Active Substance: ANASTROZOLE
     Indication: Product used for unknown indication
     Dosage: 1 MILLIGRAM, Q.A.M.
     Route: 048

REACTIONS (6)
  - Dermatitis exfoliative generalised [Not Recovered/Not Resolved]
  - Pruritus [Not Recovered/Not Resolved]
  - Rash [Not Recovered/Not Resolved]
  - Scar [Not Recovered/Not Resolved]
  - Dry skin [Not Recovered/Not Resolved]
  - Product formulation issue [Unknown]
